FAERS Safety Report 12981457 (Version 8)
Quarter: 2017Q3

REPORT INFORMATION
  Report Type: Spontaneous
  Country: US (occurrence: US)
  Receive Date: 20161129
  Receipt Date: 20170704
  Transmission Date: 20171127
  Serious: Yes (Other)
  Sender: FDA-Public Use
  Company Number: PHEH2016US031027

PATIENT
  Sex: Female
  Weight: 102.49 kg

DRUGS (1)
  1. ZOFRAN [Suspect]
     Active Substance: ONDANSETRON HYDROCHLORIDE
     Indication: VOMITING IN PREGNANCY
     Dosage: 8 MG, PRN
     Route: 048
     Dates: start: 20060425

REACTIONS (26)
  - Diabetic ulcer [Unknown]
  - Maternal exposure during pregnancy [Unknown]
  - Arteriosclerosis [Unknown]
  - Hepatic steatosis [Unknown]
  - Product use in unapproved indication [Unknown]
  - Decubitus ulcer [Unknown]
  - Pneumonia [Unknown]
  - Cardiac failure congestive [Unknown]
  - Atrial fibrillation [Unknown]
  - Adenocarcinoma [Unknown]
  - Cardiogenic shock [Unknown]
  - Hyperkalaemia [Unknown]
  - Coronary artery disease [Unknown]
  - Peripheral vascular disorder [Unknown]
  - Hyponatraemia [Unknown]
  - Osteoarthritis [Unknown]
  - Hiatus hernia [Unknown]
  - Respiratory moniliasis [Unknown]
  - Colitis ischaemic [Unknown]
  - Injury [Unknown]
  - Acute respiratory failure [Unknown]
  - Low cardiac output syndrome [Unknown]
  - Vaginal infection [Unknown]
  - Anaemia [Unknown]
  - Subchorionic haemorrhage [Unknown]
  - Urinary tract infection [Unknown]
